FAERS Safety Report 5495580-1 (Version None)
Quarter: 2007Q4

REPORT INFORMATION
  Report Type: 
  Country: None (occurrence: None)
  Receive Date: 20071025
  Receipt Date: 20071018
  Transmission Date: 20080405
  Serious: Yes (Hospitalization, Other)
  Sender: FDA-Public Use
  Company Number: PHHO2007JP10124

PATIENT
  Sex: Male
  Weight: 60 kg

DRUGS (8)
  1. DIOVAN [Suspect]
     Indication: HYPERTENSION
     Dosage: 80 MG, QD
     Route: 048
     Dates: start: 20030613
  2. ADALAT [Concomitant]
  3. HERBESSOR R [Concomitant]
  4. AMARYL [Concomitant]
  5. MELBIN [Concomitant]
  6. FRANDOL [Concomitant]
  7. WARFARIN SODIUM [Concomitant]
  8. PERDIPINE [Concomitant]

REACTIONS (5)
  - ANKLE FRACTURE [None]
  - ASTHENIA [None]
  - CEREBRAL HAEMORRHAGE [None]
  - HYPERGLYCAEMIA [None]
  - LOSS OF CONSCIOUSNESS [None]
